FAERS Safety Report 20456746 (Version 2)
Quarter: 2022Q3

REPORT INFORMATION
  Report Type: Spontaneous
  Country: US (occurrence: US)
  Receive Date: 20220210
  Receipt Date: 20220725
  Transmission Date: 20221026
  Serious: Yes (Other)
  Sender: FDA-Public Use
  Company Number: US-GILEAD-2022-0569158

PATIENT
  Sex: Male
  Weight: 97.052 kg

DRUGS (30)
  1. COMPLERA [Suspect]
     Active Substance: EMTRICITABINE\RILPIVIRINE HYDROCHLORIDE\TENOFOVIR DISOPROXIL FUMARATE
     Indication: HIV infection
     Dosage: UNK
     Route: 048
     Dates: start: 2006
  2. COMPLERA [Suspect]
     Active Substance: EMTRICITABINE\RILPIVIRINE HYDROCHLORIDE\TENOFOVIR DISOPROXIL FUMARATE
     Dosage: UNK
     Route: 048
     Dates: start: 201306, end: 202003
  3. ATRIPLA [Suspect]
     Active Substance: EFAVIRENZ\EMTRICITABINE\TENOFOVIR DISOPROXIL FUMARATE
     Indication: HIV infection
     Dosage: UNK
     Route: 048
     Dates: start: 2006, end: 201306
  4. BIKTARVY [Concomitant]
     Active Substance: BICTEGRAVIR SODIUM\EMTRICITABINE\TENOFOVIR ALAFENAMIDE FUMARATE
  5. COMBIVIR [Concomitant]
     Active Substance: LAMIVUDINE\ZIDOVUDINE
  6. CRIXIVAN [Concomitant]
     Active Substance: INDINAVIR SULFATE
  7. EMTRIVA [Concomitant]
     Active Substance: EMTRICITABINE
  8. EPIVIR [Concomitant]
     Active Substance: LAMIVUDINE
  9. KALETRA [Concomitant]
     Active Substance: LOPINAVIR\RITONAVIR
  10. NORVIR [Concomitant]
     Active Substance: RITONAVIR
  11. RESCRIPTOR [Concomitant]
     Active Substance: DELAVIRDINE MESYLATE
  12. RETROVIR [Concomitant]
     Active Substance: ZIDOVUDINE
  13. SYNJARDY XR [Concomitant]
     Active Substance: EMPAGLIFLOZIN\METFORMIN HYDROCHLORIDE
  14. ERYTHROMYCIN [Concomitant]
     Active Substance: ERYTHROMYCIN
  15. AZITHROMYCIN [Concomitant]
     Active Substance: AZITHROMYCIN
  16. DILTIAZEM [Concomitant]
     Active Substance: DILTIAZEM
  17. ROSUVASTATIN [Concomitant]
     Active Substance: ROSUVASTATIN
  18. MATZIM LA [Concomitant]
     Active Substance: DILTIAZEM HYDROCHLORIDE
  19. SOLIQUA 100/33 [Concomitant]
     Active Substance: INSULIN GLARGINE\LIXISENATIDE
  20. IPRATROPIUM [Concomitant]
     Active Substance: IPRATROPIUM
  21. IBUPROFEN [Concomitant]
     Active Substance: IBUPROFEN
  22. ACETAMINOPHEN\HYDROCODONE [Concomitant]
     Active Substance: ACETAMINOPHEN\HYDROCODONE
  23. AMOXICILLIN [Concomitant]
     Active Substance: AMOXICILLIN
  24. DIAZEPAM [Concomitant]
     Active Substance: DIAZEPAM
  25. LEVOFLOXACIN [Concomitant]
     Active Substance: LEVOFLOXACIN
  26. PENICILLIN [Concomitant]
     Active Substance: PENICILLIN
  27. CLARITHROMYCIN [Concomitant]
     Active Substance: CLARITHROMYCIN
  28. FLUTICASONE [Concomitant]
     Active Substance: FLUTICASONE
  29. TESTOSTERONE [Concomitant]
     Active Substance: TESTOSTERONE
  30. VITAMIN D3 [Concomitant]
     Active Substance: CHOLECALCIFEROL

REACTIONS (11)
  - Chronic kidney disease [Not Recovered/Not Resolved]
  - Pain [Not Recovered/Not Resolved]
  - Emotional distress [Not Recovered/Not Resolved]
  - Anxiety [Not Recovered/Not Resolved]
  - Anhedonia [Not Recovered/Not Resolved]
  - Renal impairment [Unknown]
  - Acute kidney injury [Not Recovered/Not Resolved]
  - Back pain [Unknown]
  - Fatigue [Unknown]
  - Proteinuria [Unknown]
  - Dysstasia [Not Recovered/Not Resolved]

NARRATIVE: CASE EVENT DATE: 20150101
